FAERS Safety Report 7359967-4 (Version None)
Quarter: 2011Q1

REPORT INFORMATION
  Report Type: 
  Country: None (occurrence: None)
  Receive Date: 20110317
  Receipt Date: 20110310
  Transmission Date: 20110831
  Serious: Yes (Hospitalization)
  Sender: FDA-Public Use
  Company Number: GB-AMGEN-GBRSP2011005559

PATIENT
  Age: 74 Year
  Sex: Female
  Weight: 71.5 kg

DRUGS (8)
  1. NEULASTA [Suspect]
     Indication: CHEMOTHERAPY
     Dosage: 6 MG, ONE TIME DOSE
     Route: 058
     Dates: start: 20100930
  2. BENDROFLUAZIDE [Concomitant]
     Indication: BLOOD PRESSURE
     Dosage: 2.5 MG, QD
     Route: 048
  3. VINCRISTINE [Concomitant]
     Route: 042
  4. ATENOLOL [Concomitant]
     Indication: BLOOD PRESSURE
     Dosage: 100 MG, QD
     Route: 048
  5. CYCLOPHOSPHAMIDE [Concomitant]
     Route: 042
  6. PREDNISONE TAB [Concomitant]
     Route: 042
  7. LETROZOLE [Concomitant]
     Indication: BREAST CANCER
     Dosage: 2.5 MG, QD
     Route: 048
     Dates: start: 20100601
  8. DOXORUBICIN [Concomitant]
     Route: 042

REACTIONS (2)
  - HYPOTENSION [None]
  - RASH GENERALISED [None]
